FAERS Safety Report 17532475 (Version 1)
Quarter: 2020Q1

REPORT INFORMATION
  Report Type: Spontaneous
  Country: US (occurrence: US)
  Receive Date: 20200312
  Receipt Date: 20200312
  Transmission Date: 20200409
  Serious: Yes (Hospitalization)
  Sender: FDA-Public Use
  Company Number: US-ELI_LILLY_AND_COMPANY-US202003000500

PATIENT
  Age: 67 Year
  Sex: Female

DRUGS (6)
  1. FLOMAX [Concomitant]
     Active Substance: TAMSULOSIN HYDROCHLORIDE
     Indication: PRODUCT USED FOR UNKNOWN INDICATION
  2. CLOZARIL [Concomitant]
     Active Substance: CLOZAPINE
     Indication: DEPRESSION
  3. ASPRIN [Concomitant]
     Active Substance: ASPIRIN
     Indication: PRODUCT USED FOR UNKNOWN INDICATION
  4. EMGALITY [Suspect]
     Active Substance: GALCANEZUMAB-GNLM
     Indication: MIGRAINE
     Dosage: 120 MG, UNKNOWN
     Route: 058
  5. CLOZARIL [Concomitant]
     Active Substance: CLOZAPINE
     Indication: SLEEP DISORDER
  6. SYNTHROID [Concomitant]
     Active Substance: LEVOTHYROXINE SODIUM
     Indication: PRODUCT USED FOR UNKNOWN INDICATION

REACTIONS (5)
  - Myocardial infarction [Recovered/Resolved]
  - Feeling abnormal [Unknown]
  - Underdose [Unknown]
  - Dehydration [Unknown]
  - Depression [Unknown]

NARRATIVE: CASE EVENT DATE: 202002
